FAERS Safety Report 11924762 (Version 1)
Quarter: 2016Q1

REPORT INFORMATION
  Report Type: Spontaneous
  Country: US (occurrence: US)
  Receive Date: 20160118
  Receipt Date: 20160118
  Transmission Date: 20160526
  Serious: No
  Sender: FDA-Public Use
  Company Number: US-ENDO PHARMACEUTICALS INC.-2015-001877

PATIENT
  Sex: Male
  Weight: 82.17 kg

DRUGS (1)
  1. RHEUMATREX [Suspect]
     Active Substance: METHOTREXATE SODIUM
     Indication: ARTHRITIS
     Route: 065

REACTIONS (4)
  - Abdominal discomfort [Unknown]
  - Feeling abnormal [Unknown]
  - Asthenia [Unknown]
  - Malaise [Unknown]
